FAERS Safety Report 7343226-X (Version None)
Quarter: 2011Q1

REPORT INFORMATION
  Report Type: 
  Country: None (occurrence: None)
  Receive Date: 20110310
  Receipt Date: 20110303
  Transmission Date: 20110831
  Serious: Yes (Other)
  Sender: FDA-Public Use
  Company Number: US-AMGEN-USASP2011012266

PATIENT
  Age: 56 Year
  Sex: Male

DRUGS (2)
  1. PEGASYS [Concomitant]
  2. EPOGEN [Suspect]
     Indication: HAEMOLYTIC ANAEMIA
     Dosage: UNK IU, UNK
     Dates: start: 20100813

REACTIONS (2)
  - DRUG INEFFECTIVE [None]
  - CIRCUMSTANCE OR INFORMATION CAPABLE OF LEADING TO MEDICATION ERROR [None]
